FAERS Safety Report 16833682 (Version 2)
Quarter: 2019Q4

REPORT INFORMATION
  Report Type: Spontaneous
  Country: US (occurrence: US)
  Receive Date: 20190920
  Receipt Date: 20191226
  Transmission Date: 20200122
  Serious: No
  Sender: FDA-Public Use
  Company Number: US-JNJFOC-20190900025

PATIENT
  Sex: Male

DRUGS (2)
  1. ERDAFITINIB. [Suspect]
     Active Substance: ERDAFITINIB
     Indication: PRODUCT USED FOR UNKNOWN INDICATION
     Route: 048
  2. ERDAFITINIB. [Suspect]
     Active Substance: ERDAFITINIB
     Dosage: DOSE REDUCTION HAS BEEN INITIATED FROM 8MG DAILY TO 6MG DAILY
     Route: 048

REACTIONS (3)
  - Tongue ulceration [Unknown]
  - Eye disorder [Unknown]
  - Hyperaesthesia [Unknown]
